FAERS Safety Report 18562822 (Version 1)
Quarter: 2020Q4

REPORT INFORMATION
  Report Type: Spontaneous
  Country: US (occurrence: US)
  Receive Date: 20201130
  Receipt Date: 20201130
  Transmission Date: 20210114
  Serious: No
  Sender: FDA-Public Use
  Company Number: US-ROCHE-2645739

PATIENT
  Sex: Female

DRUGS (8)
  1. LUCENTIS [Suspect]
     Active Substance: RANIBIZUMAB
     Indication: RETINAL VEIN OCCLUSION
  2. PREVACID [Concomitant]
     Active Substance: LANSOPRAZOLE
  3. LISINOPRIL. [Concomitant]
     Active Substance: LISINOPRIL
     Route: 048
  4. ASPIRIN. [Concomitant]
     Active Substance: ASPIRIN
  5. COSOPT [Concomitant]
     Active Substance: DORZOLAMIDE HYDROCHLORIDE\TIMOLOL MALEATE
  6. PROLENSA [Concomitant]
     Active Substance: BROMFENAC SODIUM
  7. LUCENTIS [Suspect]
     Active Substance: RANIBIZUMAB
     Indication: CYSTOID MACULAR OEDEMA
     Dosage: 0.5MG/0.5ML INTRAVITREAL INJECTION OD
     Route: 050
  8. TROPICAMIDE. [Concomitant]
     Active Substance: TROPICAMIDE

REACTIONS (3)
  - Headache [Unknown]
  - Ocular discomfort [Unknown]
  - Ocular vascular disorder [Unknown]
